FAERS Safety Report 4691419-2 (Version None)
Quarter: 2005Q2

REPORT INFORMATION
  Report Type: 
  Country: None (occurrence: None)
  Receive Date: 20050615
  Receipt Date: 20050603
  Transmission Date: 20051028
  Serious: Yes (Hospitalization)
  Sender: FDA-Public Use
  Company Number: KII-2005-0016878

PATIENT
  Age: 41 Year
  Sex: Male

DRUGS (4)
  1. OXYCONTIN [Suspect]
     Dosage: SEE TEXT, ORAL
     Route: 048
  2. ACETAMINOPHEN AND OXYCODONE HCL [Suspect]
     Dosage: SEE TEXT, ORAL
     Route: 048
  3. TRAZODONE (TRAZODONE) [Suspect]
     Dosage: ORAL
     Route: 048
  4. BENZODIAZEPINE (DERIVATIVES () [Suspect]
     Dosage: ORAL
     Route: 048

REACTIONS (7)
  - ALANINE AMINOTRANSFERASE INCREASED [None]
  - ASPARTATE AMINOTRANSFERASE INCREASED [None]
  - DEPRESSED LEVEL OF CONSCIOUSNESS [None]
  - DRUG SCREEN POSITIVE [None]
  - LETHARGY [None]
  - OVERDOSE [None]
  - RESPIRATORY DEPRESSION [None]
